FAERS Safety Report 4815797-6 (Version None)
Quarter: 2005Q4

REPORT INFORMATION
  Report Type: 
  Country: None (occurrence: None)
  Receive Date: 20051031
  Receipt Date: 19971211
  Transmission Date: 20060501
  Serious: Yes (Hospitalization)
  Sender: FDA-Public Use
  Company Number: D-05-028

PATIENT
  Age: 29 Year
  Sex: Female

DRUGS (6)
  1. SEROXAT [Suspect]
     Indication: PERSONALITY DISORDER
     Dosage: 10MG PER DAY
     Route: 048
     Dates: start: 19970918, end: 19971008
  2. ATOSIL [Suspect]
     Indication: PERSONALITY DISORDER
     Dosage: 125MG PER DAY
     Route: 048
     Dates: start: 19970518, end: 19971008
  3. LEPONEX [Suspect]
     Indication: PERSONALITY DISORDER
     Dosage: 300MG PER DAY
     Route: 048
     Dates: start: 19970731
  4. VALPROATE SODIUM [Concomitant]
     Indication: PERSONALITY DISORDER
     Dosage: 750MG PER DAY
     Route: 048
     Dates: start: 19971020
  5. XIMOVAN [Concomitant]
     Indication: PERSONALITY DISORDER
     Dosage: 3.75TAB PER DAY
     Route: 048
     Dates: start: 19971006
  6. TAVOR [Concomitant]
     Indication: PERSONALITY DISORDER
     Dosage: 3MG PER DAY
     Route: 048
     Dates: start: 19970715, end: 19971013

REACTIONS (8)
  - AMNESIA [None]
  - CYANOSIS [None]
  - GRAND MAL CONVULSION [None]
  - HEAD DISCOMFORT [None]
  - MUSCLE TWITCHING [None]
  - POSTICTAL STATE [None]
  - SOMNOLENCE [None]
  - TONGUE BITING [None]
